FAERS Safety Report 7146701-6 (Version None)
Quarter: 2010Q4

REPORT INFORMATION
  Report Type: 
  Country: None (occurrence: None)
  Receive Date: 20101208
  Receipt Date: 20101203
  Transmission Date: 20110411
  Serious: Yes (Other)
  Sender: FDA-Public Use
  Company Number: US-ALLERGAN-1015688US

PATIENT
  Age: 68 Year
  Sex: Female

DRUGS (2)
  1. BOTOXA? [Suspect]
     Indication: OROMANDIBULAR DYSTONIA
     Dosage: 125 UNITS, SINGLE
     Route: 030
     Dates: start: 20100802, end: 20100802
  2. BOTOXA? [Suspect]
     Indication: BLEPHAROSPASM

REACTIONS (1)
  - LYMPHOCYTIC LEUKAEMIA [None]
